FAERS Safety Report 23566169 (Version 1)
Quarter: 2024Q1

REPORT INFORMATION
  Report Type: Spontaneous
  Country: US (occurrence: US)
  Receive Date: 20240226
  Receipt Date: 20240226
  Transmission Date: 20240410
  Serious: Yes (Other)
  Sender: FDA-Public Use
  Company Number: None

PATIENT
  Age: 55 Year
  Sex: Female

DRUGS (6)
  1. QUETIAPINE [Suspect]
     Active Substance: QUETIAPINE
     Indication: Product used for unknown indication
  2. HERBALS\MITRAGYNINE [Suspect]
     Active Substance: HERBALS\MITRAGYNINE
     Indication: Phytotherapy
  3. HERBALS\MITRAGYNINE [Suspect]
     Active Substance: HERBALS\MITRAGYNINE
     Indication: Menopausal symptoms
  4. NIRMATRELVIR [Suspect]
     Active Substance: NIRMATRELVIR
     Indication: COVID-19
  5. RITONAVIR [Suspect]
     Active Substance: RITONAVIR
     Indication: COVID-19
  6. METOPROLOL [Concomitant]
     Active Substance: METOPROLOL

REACTIONS (3)
  - Herbal interaction [Recovered/Resolved]
  - Serotonin syndrome [Recovered/Resolved]
  - Drug interaction [Recovered/Resolved]
